FAERS Safety Report 21177204 (Version 2)
Quarter: 2022Q3

REPORT INFORMATION
  Report Type: Report from Study
  Country: US (occurrence: US)
  Receive Date: 20220805
  Receipt Date: 20220812
  Transmission Date: 20221027
  Serious: Yes (Other)
  Sender: FDA-Public Use
  Company Number: US-NOVARTISTESTPH-NVSC2022US176635

PATIENT
  Age: 71 Year
  Sex: Female

DRUGS (1)
  1. GILENYA [Suspect]
     Active Substance: FINGOLIMOD HYDROCHLORIDE
     Indication: Multiple sclerosis
     Dosage: 0.5 MG, QD
     Route: 048
     Dates: start: 2022, end: 20220414

REACTIONS (6)
  - Progressive multiple sclerosis [Unknown]
  - Balance disorder [Unknown]
  - Gait disturbance [Unknown]
  - Fatigue [Unknown]
  - Hypoaesthesia [Unknown]
  - Ataxia [Unknown]

NARRATIVE: CASE EVENT DATE: 20220509
